FAERS Safety Report 16777116 (Version 2)
Quarter: 2019Q3

REPORT INFORMATION
  Report Type: Report from Study
  Country: US (occurrence: US)
  Receive Date: 20190905
  Receipt Date: 20190906
  Transmission Date: 20191005
  Serious: No
  Sender: FDA-Public Use
  Company Number: US-EMD SERONO-9097065

PATIENT
  Age: 74 Year
  Sex: Male

DRUGS (1)
  1. MAVENCLAD [Suspect]
     Active Substance: CLADRIBINE
     Indication: RELAPSING-REMITTING MULTIPLE SCLEROSIS
     Dosage: THE PATIENT RECEIVED 20 MG (2 TABLETS) ON 05 JUN 2019 AND 06 JUN 2019.?DRUG DISCONTINUED ON 11 JUN 2
     Route: 048
     Dates: start: 20190605

REACTIONS (2)
  - Asthenia [Unknown]
  - Confusional state [Unknown]

NARRATIVE: CASE EVENT DATE: 201906
